FAERS Safety Report 22399315 (Version 1)
Quarter: 2023Q2

REPORT INFORMATION
  Report Type: Spontaneous
  Country: CN (occurrence: CN)
  Receive Date: 20230602
  Receipt Date: 20230602
  Transmission Date: 20230721
  Serious: Yes (Other)
  Sender: FDA-Public Use
  Company Number: CN-009507513-2305CHN010208

PATIENT
  Age: 74 Year
  Sex: Male
  Weight: 31 kg

DRUGS (2)
  1. CILASTATIN SODIUM\IMIPENEM [Suspect]
     Active Substance: CILASTATIN SODIUM\IMIPENEM
     Indication: Pneumonia
     Dosage: 1 GRAM, Q8H
     Route: 041
     Dates: start: 20230506, end: 20230512
  2. SODIUM CHLORIDE [Concomitant]
     Active Substance: SODIUM CHLORIDE
     Indication: Medication dilution
     Dosage: 200 ML, Q8H
     Route: 041
     Dates: start: 20230506, end: 20230512

REACTIONS (3)
  - Epilepsy [Recovering/Resolving]
  - Heart rate increased [Recovering/Resolving]
  - Oxygen saturation decreased [Recovering/Resolving]

NARRATIVE: CASE EVENT DATE: 20230512
